FAERS Safety Report 8790839 (Version 1)
Quarter: 2012Q4

REPORT INFORMATION
  Report Type: Spontaneous
  Country: DE (occurrence: None)
  Receive Date: 20120907
  Receipt Date: 20120907
  Transmission Date: 20130627
  Serious: Yes (Other)
  Sender: FDA-Public Use
  Company Number: GER/GER/12/0025642

PATIENT
  Age: 36 Year
  Sex: Female

DRUGS (2)
  1. SUMATRIPTAN [Suspect]
     Route: 048
     Dates: start: 20110609, end: 20111007
  2. FOLIO FORTE (FOLIO) [Concomitant]

REACTIONS (3)
  - Abortion induced [None]
  - Oligohydramnios [None]
  - Exposure during pregnancy [None]
